FAERS Safety Report 15145569 (Version 1)
Quarter: 2018Q3

REPORT INFORMATION
  Report Type: Spontaneous
  Country: DK (occurrence: FR)
  Receive Date: 20180713
  Receipt Date: 20180713
  Transmission Date: 20181010
  Serious: Yes (Death, Hospitalization)
  Sender: FDA-Public Use
  Company Number: FR-ALLERGAN-1000049305

PATIENT
  Age: 74 Year
  Sex: Female

DRUGS (12)
  1. XANAX [Suspect]
     Active Substance: ALPRAZOLAM
     Indication: ANXIETY
     Dosage: 1 DF, QD
     Route: 048
     Dates: end: 20130811
  2. LANTUS [Concomitant]
     Active Substance: INSULIN GLARGINE
     Indication: TYPE 2 DIABETES MELLITUS
     Dosage: 1 DF, QD
     Route: 058
     Dates: end: 20130811
  3. ZOPICLONE [Suspect]
     Active Substance: ZOPICLONE
     Indication: SLEEP DISORDER
     Dosage: 1 DF, QD
     Route: 048
     Dates: end: 20130811
  4. LOXAPAC [Suspect]
     Active Substance: LOXAPINE
     Indication: DEMENTIA
     Dosage: 25 MG, UNKNOWN
     Route: 048
     Dates: start: 20130729, end: 20130811
  5. NOVORAPID [Concomitant]
     Active Substance: INSULIN ASPART
     Indication: TYPE 2 DIABETES MELLITUS
     Dosage: 1 DF, QD
     Route: 058
     Dates: end: 20130811
  6. LAMALINE (ACETAMINOPHEN\CAFFEINE\OPIUM) [Suspect]
     Active Substance: ACETAMINOPHEN\CAFFEINE\OPIUM
     Indication: PAIN
     Dosage: 1 DF, TID
     Route: 048
     Dates: end: 20130811
  7. FLUCONAZOLE. [Suspect]
     Active Substance: FLUCONAZOLE
     Indication: HYPERTENSION
     Dosage: 1 DF, QD (10/2.5 UNITS)
     Route: 048
     Dates: end: 20170811
  8. CITALOPRAM HYDROBROMIDE UNK [Suspect]
     Active Substance: CITALOPRAM HYDROBROMIDE
     Indication: DEPRESSION
     Dosage: 20 MG, QD
     Route: 048
     Dates: end: 20130811
  9. XANAX [Suspect]
     Active Substance: ALPRAZOLAM
     Indication: ANXIETY
     Dosage: UNK, UNKNOWN
     Route: 065
  10. PRETERAX [Suspect]
     Active Substance: INDAPAMIDE\PERINDOPRIL
     Indication: HYPERTENSION
     Dosage: 1 DF, QD
     Route: 048
     Dates: end: 20130811
  11. ABILIFY [Suspect]
     Active Substance: ARIPIPRAZOLE
     Indication: DEMENTIA
     Dosage: .5 DF, QD
     Route: 048
     Dates: start: 201307, end: 20130811
  12. LOXAPAC [Suspect]
     Active Substance: LOXAPINE
     Indication: AGITATION

REACTIONS (6)
  - Inflammation [Fatal]
  - Somnolence [Fatal]
  - Death [Fatal]
  - Pneumonia aspiration [Fatal]
  - Acute kidney injury [Fatal]
  - Diabetic hyperosmolar coma [Fatal]

NARRATIVE: CASE EVENT DATE: 20130811
